FAERS Safety Report 5557488-2 (Version None)
Quarter: 2007Q4

REPORT INFORMATION
  Report Type: 
  Country: None (occurrence: None)
  Receive Date: 20071214
  Receipt Date: 20071012
  Transmission Date: 20080405
  Serious: No
  Sender: FDA-Public Use
  Company Number: US-AMGEN-KDL243361

PATIENT
  Sex: Female
  Weight: 91.3 kg

DRUGS (7)
  1. ENBREL [Suspect]
     Indication: PSORIASIS
     Route: 058
     Dates: start: 20070715, end: 20070920
  2. ZOLOFT [Concomitant]
  3. NEXIUM [Concomitant]
  4. CELEBREX [Concomitant]
  5. ADVIL LIQUI-GELS [Concomitant]
  6. SYNTHROID [Concomitant]
  7. TOPROL-XL [Concomitant]

REACTIONS (1)
  - PARAESTHESIA [None]
